FAERS Safety Report 23821861 (Version 1)
Quarter: 2024Q2

REPORT INFORMATION
  Report Type: Other
  Country: JP (occurrence: None)
  Receive Date: 20240506
  Receipt Date: 20240506
  Transmission Date: 20240715
  Serious: Yes (Other)
  Sender: FDA-Public Use
  Company Number: JP-ROCHE-3554772

PATIENT
  Sex: Male

DRUGS (4)
  1. ATEZOLIZUMAB [Suspect]
     Active Substance: ATEZOLIZUMAB
     Indication: Small cell lung cancer extensive stage
     Route: 065
  2. DURVALUMAB [Suspect]
     Active Substance: DURVALUMAB
     Indication: Small cell lung cancer extensive stage
     Route: 065
  3. CARBOPLATIN [Concomitant]
     Active Substance: CARBOPLATIN
     Indication: Small cell lung cancer extensive stage
     Dosage: 5MG/ML UP TO 4 CYCLES
  4. ETOPOSIDE [Concomitant]
     Active Substance: ETOPOSIDE
     Indication: Small cell lung cancer extensive stage
     Dosage: UP TO 4 CYCLES

REACTIONS (12)
  - Dermatitis [Unknown]
  - Rash [Unknown]
  - Hypothyroidism [Unknown]
  - Polyarthritis [Unknown]
  - Hepatitis [Unknown]
  - Encephalitis [Unknown]
  - Myositis [Unknown]
  - Autoimmune haemolytic anaemia [Unknown]
  - Myocarditis [Unknown]
  - Pneumonitis [Unknown]
  - Hypophysitis [Unknown]
  - Infusion related reaction [Unknown]
